FAERS Safety Report 22059517 (Version 1)
Quarter: 2023Q1

REPORT INFORMATION
  Report Type: Spontaneous
  Country: US (occurrence: None)
  Receive Date: 20230302
  Receipt Date: 20230302
  Transmission Date: 20230418
  Serious: Yes (Hospitalization)
  Sender: FDA-Public Use
  Company Number: None

PATIENT
  Age: 67 Year
  Sex: Female
  Weight: 96.39 kg

DRUGS (23)
  1. VERZENIO [Suspect]
     Active Substance: ABEMACICLIB
     Indication: Breast cancer female
     Dosage: FREQUENCY : TWICE A DAY;?
     Route: 048
  2. ACETAMINOPHEN [Concomitant]
  3. ADVAIR [Concomitant]
  4. CARVEDILOL [Concomitant]
     Active Substance: CARVEDILOL
  5. MULTIVITAMINS [Concomitant]
  6. DOXYCYCLINE [Concomitant]
  7. ELIQUIS [Concomitant]
  8. ESCITALOPRAM [Concomitant]
  9. EXEMESTANE [Concomitant]
  10. FERROUS SULFATE [Concomitant]
  11. GABAPENTIN [Concomitant]
  12. HYDROCHLOROTHIAZIDE [Concomitant]
  13. CETIRIZINE [Concomitant]
  14. LETROZOLE [Concomitant]
  15. LORAZEPAM [Concomitant]
  16. OXYCODONE [Concomitant]
  17. PANTOPRAZOLE [Concomitant]
  18. PROAIR [Concomitant]
  19. ROSUVASTATIN [Concomitant]
  20. SUMATRIPTAN [Concomitant]
  21. TUMS [Concomitant]
  22. TUMERIC [Concomitant]
  23. VITAMIN D3 [Concomitant]

REACTIONS (2)
  - Diarrhoea [None]
  - Therapy cessation [None]
